FAERS Safety Report 16020321 (Version 1)
Quarter: 2019Q1

REPORT INFORMATION
  Report Type: Spontaneous
  Country: US (occurrence: US)
  Receive Date: 20190228
  Receipt Date: 20190228
  Transmission Date: 20190418
  Serious: No
  Sender: FDA-Public Use
  Company Number: US-MYLANLABS-2018M1090277

PATIENT
  Sex: Female
  Weight: 77 kg

DRUGS (1)
  1. CITALOPRAM [Suspect]
     Active Substance: CITALOPRAM HYDROBROMIDE
     Indication: SLEEP DISORDER
     Dosage: UNK
     Route: 065

REACTIONS (1)
  - Off label use [Unknown]
